FAERS Safety Report 18202515 (Version 1)
Quarter: 2020Q3

REPORT INFORMATION
  Report Type: Spontaneous
  Country: FR (occurrence: FR)
  Receive Date: 20200827
  Receipt Date: 20200827
  Transmission Date: 20201103
  Serious: Yes (Hospitalization)
  Sender: FDA-Public Use
  Company Number: FR-ACCORD-197707

PATIENT
  Age: 80 Year
  Sex: Female
  Weight: 62 kg

DRUGS (3)
  1. ETOPOSIDE MYLEN [Suspect]
     Active Substance: ETOPOSIDE
     Indication: SMALL CELL LUNG CANCER
     Route: 042
     Dates: start: 20200707, end: 20200709
  2. CARBOPLATIN ACCORD [Suspect]
     Active Substance: CARBOPLATIN
     Indication: SMALL CELL LUNG CANCER
     Route: 042
     Dates: start: 20200707, end: 20200709
  3. TECENTRIQ [Suspect]
     Active Substance: ATEZOLIZUMAB
     Indication: SMALL CELL LUNG CANCER
     Route: 042
     Dates: start: 20200707, end: 20200709

REACTIONS (1)
  - Vasculitis [Recovered/Resolved]

NARRATIVE: CASE EVENT DATE: 20200720
